FAERS Safety Report 15340462 (Version 1)
Quarter: 2018Q3

REPORT INFORMATION
  Report Type: Spontaneous
  Country: NL (occurrence: NL)
  Receive Date: 20180831
  Receipt Date: 20180831
  Transmission Date: 20181010
  Serious: Yes (Other)
  Sender: FDA-Public Use
  Company Number: NL-ELI_LILLY_AND_COMPANY-NL201808009317

PATIENT
  Age: 48 Year
  Sex: Male

DRUGS (4)
  1. BIPERIDEN [Concomitant]
     Active Substance: BIPERIDEN
     Indication: PRODUCT USED FOR UNKNOWN INDICATION
     Dosage: UNK UNK, UNKNOWN
     Route: 065
  2. CATAFLAM [Concomitant]
     Active Substance: DICLOFENAC POTASSIUM
     Indication: PRODUCT USED FOR UNKNOWN INDICATION
     Dosage: UNK UNK, UNKNOWN
     Route: 065
  3. OXAZEPAM. [Concomitant]
     Active Substance: OXAZEPAM
     Indication: PRODUCT USED FOR UNKNOWN INDICATION
     Dosage: UNK UNK, UNKNOWN
     Route: 065
  4. ZYPADHERA [Suspect]
     Active Substance: OLANZAPINE PAMOATE
     Indication: PRODUCT USED FOR UNKNOWN INDICATION
     Dosage: 405 MG, 2/M
     Route: 030
     Dates: end: 2018

REACTIONS (10)
  - Dysarthria [Unknown]
  - Post-injection delirium sedation syndrome [Unknown]
  - Agitation [Unknown]
  - Prescribed overdose [Recovered/Resolved]
  - Heart rate increased [Unknown]
  - Inappropriate schedule of drug administration [Recovered/Resolved]
  - Post-injection delirium sedation syndrome [Unknown]
  - Restlessness [Unknown]
  - Dizziness [Unknown]
  - Depressed level of consciousness [Unknown]

NARRATIVE: CASE EVENT DATE: 20180628
